FAERS Safety Report 5136326-6 (Version None)
Quarter: 2006Q4

REPORT INFORMATION
  Report Type: 
  Country: None (occurrence: None)
  Receive Date: 20061027
  Receipt Date: 20061019
  Transmission Date: 20070319
  Serious: Yes (Death, Life-Threatening)
  Sender: FDA-Public Use
  Company Number: CH-GLAXOSMITHKLINE-B0444035A

PATIENT
  Age: 86 Year
  Sex: Male
  Weight: 65 kg

DRUGS (12)
  1. AUGMENTIN '125' [Suspect]
     Dosage: 312.5MG THREE TIMES PER DAY
     Route: 065
     Dates: start: 20060619, end: 20060627
  2. DIPIPERON [Suspect]
     Dosage: 20MG PER DAY
     Route: 048
     Dates: start: 20060728, end: 20060813
  3. NEXIUM [Suspect]
     Dosage: 40MG PER DAY
     Route: 048
     Dates: start: 20060628, end: 20060813
  4. ARICEPT [Suspect]
     Indication: DEMENTIA
     Route: 048
     Dates: start: 20060724, end: 20060803
  5. MARCUMAR [Suspect]
     Indication: PULMONARY EMBOLISM
     Route: 048
     Dates: start: 20060628, end: 20060813
  6. TOREM [Suspect]
     Route: 048
     Dates: start: 20060627, end: 20060813
  7. DIOVAN [Suspect]
     Dosage: 80MG PER DAY
     Route: 048
     Dates: start: 20060619, end: 20060813
  8. LORAZEPAM [Concomitant]
     Dosage: .51MG PER DAY
     Route: 048
     Dates: start: 20060627, end: 20060727
  9. DALTEPARIN SODIUM [Concomitant]
     Route: 058
     Dates: start: 20060619, end: 20060731
  10. PERENTEROL [Concomitant]
     Dosage: 2CAP THREE TIMES PER DAY
     Dates: start: 20060620, end: 20060629
  11. LASIX [Concomitant]
     Route: 042
     Dates: start: 20060626
  12. FLUIMUCIL [Concomitant]
     Dosage: 1200MG PER DAY
     Dates: start: 20060626

REACTIONS (15)
  - BENIGN PROSTATIC HYPERPLASIA [None]
  - BLISTER [None]
  - CARDIAC VALVE DISEASE [None]
  - FALL [None]
  - HYPERTENSION [None]
  - MALNUTRITION [None]
  - METASTASES TO LIVER [None]
  - ONYCHOMYCOSIS [None]
  - OSTEOARTHRITIS [None]
  - PAIN [None]
  - RASH [None]
  - RASH MACULO-PAPULAR [None]
  - RECTAL CANCER [None]
  - SCLERODERMA [None]
  - TOXIC EPIDERMAL NECROLYSIS [None]
